FAERS Safety Report 4724901-X (Version None)
Quarter: 2005Q3

REPORT INFORMATION
  Report Type: 
  Country: None (occurrence: None)
  Receive Date: 20050726
  Receipt Date: 20050718
  Transmission Date: 20060218
  Serious: Yes (Hospitalization)
  Sender: FDA-Public Use
  Company Number: US-SANOFI-SYNTHELABO-A03200502146

PATIENT
  Sex: Male

DRUGS (5)
  1. ELOXATIN [Suspect]
     Indication: COLON CANCER
     Route: 042
     Dates: start: 20050620, end: 20050620
  2. FLUOROURACIL [Concomitant]
     Route: 042
     Dates: start: 20050620
  3. LEUCOVORIN [Concomitant]
     Route: 042
     Dates: start: 20050620
  4. MORPHINE SULFATE [Concomitant]
     Dosage: UNK
     Route: 065
  5. SENOKOT [Concomitant]
     Dosage: UNK
     Route: 065

REACTIONS (4)
  - GUILLAIN-BARRE SYNDROME [None]
  - PAIN [None]
  - PARAESTHESIA [None]
  - QUADRIPARESIS [None]
